FAERS Safety Report 6584081-5 (Version None)
Quarter: 2010Q1

REPORT INFORMATION
  Report Type: 
  Country: None (occurrence: None)
  Receive Date: 20100213
  Receipt Date: 20100213
  Transmission Date: 20100710
  Serious: Yes (Other)
  Sender: FDA-Public Use
  Company Number: None

PATIENT
  Age: 77 Year
  Sex: Female
  Weight: 78 kg

DRUGS (1)
  1. AMIDATE [Suspect]
     Indication: ANAESTHESIA PROCEDURE
     Dosage: 10 MG X1 IV BOLUS
     Route: 040
     Dates: start: 20100205, end: 20100205

REACTIONS (2)
  - ANAESTHETIC COMPLICATION [None]
  - PRODUCT QUALITY ISSUE [None]
